FAERS Safety Report 26001590 (Version 1)
Quarter: 2025Q4

REPORT INFORMATION
  Report Type: Spontaneous
  Country: US (occurrence: US)
  Receive Date: 20251105
  Receipt Date: 20251105
  Transmission Date: 20260117
  Serious: No
  Sender: ABBVIE
  Company Number: US-ABBVIE-6528284

PATIENT

DRUGS (1)
  1. LINACLOTIDE [Suspect]
     Active Substance: LINACLOTIDE
     Indication: Constipation
     Route: 048

REACTIONS (6)
  - Urinary retention [Unknown]
  - Product use complaint [Unknown]
  - Infrequent bowel movements [Unknown]
  - Diarrhoea [Unknown]
  - Abdominal distension [Unknown]
  - Bacterial infection [Unknown]
